FAERS Safety Report 19017573 (Version 1)
Quarter: 2021Q1

REPORT INFORMATION
  Report Type: Report from Study
  Country: US (occurrence: US)
  Receive Date: 20210317
  Receipt Date: 20210317
  Transmission Date: 20210420
  Serious: Yes (Hospitalization)
  Sender: FDA-Public Use
  Company Number: US-INSMED, INC.-2021-07954-US

PATIENT

DRUGS (2)
  1. ARIKAYCE [Suspect]
     Active Substance: AMIKACIN
     Indication: PRODUCT USED FOR UNKNOWN INDICATION
     Dosage: 590 MILLIGRAM, UNK
     Route: 055
     Dates: start: 20200701
  2. ARIKAYCE [Suspect]
     Active Substance: AMIKACIN
     Dosage: 590 UNK
     Route: 055

REACTIONS (2)
  - Therapy interrupted [Unknown]
  - Hospitalisation [Unknown]
